FAERS Safety Report 25067937 (Version 2)
Quarter: 2025Q2

REPORT INFORMATION
  Report Type: Spontaneous
  Country: IE (occurrence: IE)
  Receive Date: 20250312
  Receipt Date: 20250407
  Transmission Date: 20250716
  Serious: Yes (Other)
  Sender: MYLAN
  Company Number: IE-MYLANLABS-2025M1019638

PATIENT
  Sex: Male

DRUGS (1)
  1. CLOZARIL [Suspect]
     Active Substance: CLOZAPINE
     Indication: Schizophrenia

REACTIONS (1)
  - Differential white blood cell count abnormal [Recovered/Resolved]

NARRATIVE: CASE EVENT DATE: 20250304
